FAERS Safety Report 5943030-0 (Version None)
Quarter: 2008Q4

REPORT INFORMATION
  Report Type: 
  Country: None (occurrence: None)
  Receive Date: 20081106
  Receipt Date: 20081031
  Transmission Date: 20090506
  Serious: Yes (Life-Threatening, Hospitalization, Disabling, Other)
  Sender: FDA-Public Use
  Company Number: JP-BRACCO-001084

PATIENT
  Age: 65 Year
  Sex: Male

DRUGS (7)
  1. IOPAMIDOL [Suspect]
     Indication: COMPUTERISED TOMOGRAM
     Route: 042
     Dates: start: 20080829, end: 20080829
  2. IOPAMIDOL [Suspect]
     Indication: RENAL CYST
     Route: 042
     Dates: start: 20080829, end: 20080829
  3. SOLU-CORTEF [Concomitant]
     Route: 065
     Dates: start: 20080829, end: 20080829
  4. BOSMIN [Concomitant]
     Route: 065
     Dates: start: 20080829, end: 20080829
  5. FLAGYL [Concomitant]
     Route: 065
     Dates: start: 20080908, end: 20080908
  6. CONTRAST MEDIA [Concomitant]
     Indication: CATHETERISATION CARDIAC
     Route: 013
     Dates: start: 20080401, end: 20080401
  7. CONTRAST MEDIA [Concomitant]
     Indication: COMPUTERISED TOMOGRAM
     Route: 065
     Dates: start: 20080516, end: 20080516

REACTIONS (12)
  - ANGINA PECTORIS [None]
  - ARTERIOSPASM CORONARY [None]
  - BLINDNESS [None]
  - CARDIOGENIC SHOCK [None]
  - CEREBRAL INFARCTION [None]
  - CLOSTRIDIAL INFECTION [None]
  - CORONARY ARTERY DISEASE [None]
  - DEHYDRATION [None]
  - DIARRHOEA HAEMORRHAGIC [None]
  - MYOCARDIAL INFARCTION [None]
  - OPTIC ISCHAEMIC NEUROPATHY [None]
  - RENAL CYST [None]
